FAERS Safety Report 17058444 (Version 1)
Quarter: 2019Q4

REPORT INFORMATION
  Report Type: Spontaneous
  Country: US (occurrence: US)
  Receive Date: 20191023
  Receipt Date: 20191023
  Transmission Date: 20200122
  Serious: Yes (Hospitalization)
  Sender: FDA-Public Use
  Company Number: None

PATIENT
  Sex: Female

DRUGS (1)
  1. IMATINIB MESYLATE 100MG NORTHSTAR RX [Suspect]
     Active Substance: IMATINIB MESYLATE
     Route: 048
     Dates: start: 201803

REACTIONS (3)
  - Blood glucose increased [None]
  - Ankle fracture [None]
  - Myocardial infarction [None]
